FAERS Safety Report 8409799-0 (Version None)
Quarter: 2012Q2

REPORT INFORMATION
  Report Type: 
  Country: None (occurrence: None)
  Receive Date: 20120605
  Receipt Date: 20120530
  Transmission Date: 20120825
  Serious: No
  Sender: FDA-Public Use
  Company Number: US-PFIZER INC-2012100586

PATIENT
  Sex: Female
  Weight: 70 kg

DRUGS (20)
  1. LEVOTHYROXINE [Concomitant]
     Indication: HYPOTHYROIDISM
     Dosage: 50 MCG
  2. ZOCOR [Concomitant]
     Indication: BLOOD CHOLESTEROL INCREASED
     Dosage: 20 MG, 1X/DAY
     Dates: start: 20090729
  3. FLONASE [Concomitant]
     Dosage: 0.1 MG, 1X/DAY (EACH NOSTRIL)
     Route: 045
     Dates: start: 20120409
  4. LISINOPRIL [Concomitant]
     Indication: HYPERTENSION
     Dosage: 20 MG, 1X/DAY
  5. MAXZIDE [Concomitant]
     Dosage: 25MG/37.5MG
     Route: 048
     Dates: start: 20110519
  6. PROAIR HFA [Concomitant]
     Dosage: 90 UG, EVERY 4 HRS AS NEEDED
     Route: 048
     Dates: start: 20110411
  7. SYNTHROID [Concomitant]
     Dosage: 0.1 MG, 1X/DAY
     Route: 048
     Dates: start: 20100621
  8. PREMARIN [Suspect]
     Indication: VULVOVAGINAL DRYNESS
     Dosage: UNK
     Route: 067
     Dates: start: 20051101, end: 20111101
  9. PREMARIN [Suspect]
     Indication: ATROPHIC VULVOVAGINITIS
     Dosage: 1 G, 3 TIMES/WEEK
     Route: 067
     Dates: start: 20100817, end: 20120423
  10. ALBUTEROL [Concomitant]
     Dosage: UNK
     Dates: start: 20070524
  11. EXTRA STRENGTH TYLENOL [Concomitant]
     Indication: PAIN
     Dosage: UNK
     Route: 048
  12. FISH OIL [Concomitant]
  13. METFORMIN [Concomitant]
     Indication: TYPE 2 DIABETES MELLITUS
     Dosage: 500 MG, 2X/DAY
     Dates: start: 20060806
  14. CELEXA [Concomitant]
     Indication: DEPRESSION
     Dosage: 10 MG, 1X/DAY
     Route: 048
     Dates: start: 20101004
  15. ERYTHROMYCIN [Concomitant]
     Dosage: 0.5% OINTMENT
  16. LIDODERM [Concomitant]
     Dosage: 5% PATCH, 2XDAY
  17. METFORMIN [Concomitant]
     Dosage: 500 MG, 3X/DAY
     Dates: start: 20100610
  18. PRILOSEC [Concomitant]
     Dosage: 20 MG, 1X/DAY
  19. EVISTA [Concomitant]
     Indication: OSTEOPOROSIS
     Dosage: 60 MG, 1X/DAY
     Route: 048
     Dates: start: 20061023
  20. NEURONTIN [Concomitant]
     Dosage: 100 MG, UNK
     Dates: start: 20100421

REACTIONS (4)
  - VULVOVAGINAL BURNING SENSATION [None]
  - VULVOVAGINAL PAIN [None]
  - DISCOMFORT [None]
  - INSOMNIA [None]
